FAERS Safety Report 21520903 (Version 7)
Quarter: 2023Q2

REPORT INFORMATION
  Report Type: Spontaneous
  Country: US (occurrence: US)
  Receive Date: 20221028
  Receipt Date: 20230607
  Transmission Date: 20230722
  Serious: Yes (Other)
  Sender: FDA-Public Use
  Company Number: US-INCYTE CORPORATION-2022IN009975

PATIENT

DRUGS (13)
  1. JAKAFI [Suspect]
     Active Substance: RUXOLITINIB
     Indication: Polycythaemia vera
     Dosage: 5 MILLIGRAM, BID
     Route: 065
     Dates: start: 202207
  2. JAKAFI [Suspect]
     Active Substance: RUXOLITINIB
     Dosage: 20 MILLIGRAM, BID
     Route: 048
     Dates: start: 20220707
  3. JAKAFI [Suspect]
     Active Substance: RUXOLITINIB
     Dosage: 20 MILLIGRAM, BID
     Route: 048
     Dates: start: 20220711
  4. JAKAFI [Suspect]
     Active Substance: RUXOLITINIB
     Dosage: 15 MILLIGRAM, BID
     Route: 048
  5. JAKAFI [Suspect]
     Active Substance: RUXOLITINIB
     Dosage: 20 MILLIGRAM, BID (TAKE 1 (5MG) TABLET WITH ONE 15 MG TABLET EACH TIME)
     Route: 048
  6. JAKAFI [Suspect]
     Active Substance: RUXOLITINIB
     Dosage: 20 MILLIGRAM, BID
     Route: 048
  7. JAKAFI [Suspect]
     Active Substance: RUXOLITINIB
     Dosage: 10 MILLIGRAM, BID
     Route: 048
  8. JAKAFI [Suspect]
     Active Substance: RUXOLITINIB
     Dosage: UNK UNK, BID (20 MG IN THE MORNING INSTEAD OF 10 MG)
     Route: 048
  9. ASPIRIN [Suspect]
     Active Substance: ASPIRIN
     Indication: Product used for unknown indication
     Dosage: 81 MILLIGRAM
     Route: 065
  10. MORNIFLUMATE [Concomitant]
     Active Substance: MORNIFLUMATE
     Indication: Product used for unknown indication
     Dosage: 0.4 MILLIGRAM
     Route: 065
  11. KEPPRA [Concomitant]
     Active Substance: LEVETIRACETAM
     Indication: Product used for unknown indication
     Dosage: 500 MILLIGRAM
     Route: 065
  12. PROAIR HFA [Concomitant]
     Active Substance: ALBUTEROL SULFATE
     Indication: Product used for unknown indication
     Dosage: 108(90 MC
     Route: 065
  13. METAMUCIL [Concomitant]
     Active Substance: PLANTAGO SEED
     Indication: Product used for unknown indication
     Dosage: 48.57 PERCENT
     Route: 065

REACTIONS (26)
  - Haemorrhage [Unknown]
  - Deafness [Unknown]
  - Rash macular [Not Recovered/Not Resolved]
  - Somnolence [Unknown]
  - Energy increased [Unknown]
  - Wound [Unknown]
  - Abdominal pain [Unknown]
  - Spleen disorder [Unknown]
  - Abdominal tenderness [Unknown]
  - Asthenia [Unknown]
  - Early satiety [Unknown]
  - Abdominal pain upper [Unknown]
  - Urticaria [Not Recovered/Not Resolved]
  - Pruritus [Unknown]
  - Skin reaction [Unknown]
  - Skin exfoliation [Unknown]
  - Skin laceration [Not Recovered/Not Resolved]
  - Skin haemorrhage [Unknown]
  - Intentional product use issue [Unknown]
  - Constipation [Unknown]
  - Contusion [Unknown]
  - Increased tendency to bruise [Unknown]
  - Weight increased [Unknown]
  - Haematocrit decreased [Unknown]
  - Haemoglobin decreased [Unknown]
  - Red blood cell count decreased [Unknown]
